FAERS Safety Report 17162265 (Version 1)
Quarter: 2019Q4

REPORT INFORMATION
  Report Type: Spontaneous
  Country: NL (occurrence: NL)
  Receive Date: 20191217
  Receipt Date: 20191217
  Transmission Date: 20200122
  Serious: Yes (Hospitalization)
  Sender: FDA-Public Use
  Company Number: NL-TEVA-2019-NL-1151383

PATIENT
  Age: 59 Year
  Sex: Female
  Weight: 38 kg

DRUGS (16)
  1. BISOPROLOL AUROBINDO 2,5 MG TABLET [Concomitant]
  2. MAGNESIUMHYDROXIDE TEVA 724 MG KAUWTABLET [Concomitant]
  3. CALCI-BONED3 2,5 G/800 IE KAUWTABLET [Concomitant]
  4. OMEPRAZOL MAAGSAPRESISTENTE CAPSULE, 40 MG (MILLIGRAM) [Suspect]
     Active Substance: OMEPRAZOLE
     Indication: OESOPHAGITIS
     Dosage: 40 MILLIGRAM, 2DD1
     Dates: start: 2017
  5. AMLODIPINE MYLAN 5 MG TABLET [Concomitant]
  6. NITROGLYCERINE 0,4 MG/DOSIS [Concomitant]
  7. RISEDRONINEZUUR SANDOZ 35 MG TABLET [Concomitant]
  8. OXYCODON GL 5 MG TABLET [Concomitant]
  9. PANTOPRAZOL AUROBINDO [Suspect]
     Active Substance: PANTOPRAZOLE SODIUM
     Indication: DIAPHRAGMATIC HERNIA
     Dosage: 20 MG TABLET MSR 1DD1
     Dates: start: 2017, end: 20191115
  10. ACETYLSALICYLZUUR RATIOPHARM 80 MG DISPERTABL [Concomitant]
  11. ISOSORBIDEMONONITRAAT ACTAVIS 60 MG TABLET MGA [Concomitant]
  12. PERINDOPRIL GLENMARK 2 MG TABLET [Concomitant]
  13. OMEPRAZOL MAAGSAPRESISTENTE CAPSULE, 40 MG (MILLIGRAM) [Suspect]
     Active Substance: OMEPRAZOLE
     Indication: DIAPHRAGMATIC HERNIA
  14. OMEPRAZOL FOCUS FARMA 40 MG MSR CAPSULE [Concomitant]
  15. ACTAVIS OXAZEPAM 10 MG TABLET [Concomitant]
  16. ATORVASTATINE MYLAN 40 MG TABLET [Concomitant]

REACTIONS (2)
  - Hypomagnesaemia [Recovering/Resolving]
  - Hypokalaemia [Recovering/Resolving]

NARRATIVE: CASE EVENT DATE: 2017
